FAERS Safety Report 6733450-9 (Version None)
Quarter: 2010Q2

REPORT INFORMATION
  Report Type: 
  Country: None (occurrence: None)
  Receive Date: 20100520
  Receipt Date: 20100517
  Transmission Date: 20101027
  Serious: Yes (Other)
  Sender: FDA-Public Use
  Company Number: IT-TEVA-234862USA

PATIENT
  Age: 33 Year
  Sex: Female

DRUGS (4)
  1. PIMOZIDE TABLETS [Suspect]
     Indication: DRUG USE FOR UNKNOWN INDICATION
     Dosage: 28 TABLETS
     Route: 048
  2. CITALOPRAM HYDROBROMIDE [Suspect]
     Indication: DRUG USE FOR UNKNOWN INDICATION
     Dosage: 28 TABLETS
     Route: 048
  3. AMISULPRIDE [Suspect]
     Indication: DRUG USE FOR UNKNOWN INDICATION
     Dosage: 12 TABLETS
     Route: 048
  4. PAROXETINE HCL [Suspect]
     Indication: DRUG USE FOR UNKNOWN INDICATION
     Dosage: 28 TABLETS
     Route: 048

REACTIONS (2)
  - INTENTIONAL OVERDOSE [None]
  - SELF INJURIOUS BEHAVIOUR [None]
